FAERS Safety Report 4535775-4 (Version None)
Quarter: 2004Q4

REPORT INFORMATION
  Report Type: 
  Country: None (occurrence: None)
  Receive Date: 20041223
  Receipt Date: 20040304
  Transmission Date: 20050328
  Serious: No
  Sender: FDA-Public Use
  Company Number: US-GLAXOSMITHKLINE-A0501173A

PATIENT
  Sex: Female

DRUGS (4)
  1. FLONASE [Suspect]
     Dosage: 100MCG PER DAY
     Route: 045
     Dates: end: 20040304
  2. ALLEGRA [Concomitant]
  3. ORTHO CYCLEN-28 [Concomitant]
  4. ANTIBIOTIC [Concomitant]

REACTIONS (2)
  - EPISTAXIS [None]
  - HEADACHE [None]
